FAERS Safety Report 13984450 (Version 3)
Quarter: 2017Q4

REPORT INFORMATION
  Report Type: Spontaneous
  Country: JP (occurrence: JP)
  Receive Date: 20170918
  Receipt Date: 20171205
  Transmission Date: 20180321
  Serious: Yes (Death, Other)
  Sender: FDA-Public Use
  Company Number: JP-PFIZER INC-2017397119

PATIENT
  Age: 24 Year
  Sex: Male

DRUGS (6)
  1. CIPROXAN [Concomitant]
     Active Substance: CIPROFLOXACIN
     Dosage: 300 G, 2X/DAY
     Route: 041
     Dates: start: 20170804
  2. TAZOPIPE [Concomitant]
     Active Substance: PIPERACILLIN SODIUM\TAZOBACTAM SODIUM
     Dosage: 4.5 G, 4X/DAY
     Route: 041
     Dates: start: 20170724, end: 20170809
  3. VFEND [Suspect]
     Active Substance: VORICONAZOLE
     Indication: ANTIFUNGAL TREATMENT
     Dosage: 150 G, 2X/DAY
     Route: 041
     Dates: start: 20170824, end: 20170901
  4. FUNGUARD [Concomitant]
     Active Substance: MICAFUNGIN SODIUM
     Dosage: 50 G, 1X/DAY
     Route: 041
     Dates: start: 20170726, end: 20170814
  5. TAZOPIPE [Concomitant]
     Active Substance: PIPERACILLIN SODIUM\TAZOBACTAM SODIUM
     Dosage: 4.5 G, 4X/DAY
     Route: 041
     Dates: start: 20170811
  6. FUNGUARD [Concomitant]
     Active Substance: MICAFUNGIN SODIUM
     Dosage: 50 G, 1X/DAY
     Route: 041
     Dates: start: 20170819, end: 20170824

REACTIONS (3)
  - Disease progression [Fatal]
  - Candida sepsis [Fatal]
  - Nephrogenic diabetes insipidus [Unknown]

NARRATIVE: CASE EVENT DATE: 20170830
